FAERS Safety Report 15781093 (Version 1)
Quarter: 2019Q1

REPORT INFORMATION
  Report Type: Spontaneous
  Country: US (occurrence: US)
  Receive Date: 20190102
  Receipt Date: 20190102
  Transmission Date: 20190417
  Serious: No
  Sender: FDA-Public Use
  Company Number: US-JNJFOC-20181224216

PATIENT
  Sex: Female

DRUGS (1)
  1. CHILDRENS TYLENOL [Suspect]
     Active Substance: ACETAMINOPHEN
     Indication: MYALGIA
     Route: 050

REACTIONS (2)
  - Wrong technique in product usage process [Unknown]
  - Product administered to patient of inappropriate age [Unknown]
